FAERS Safety Report 6410432-8 (Version None)
Quarter: 2009Q4

REPORT INFORMATION
  Report Type: 
  Country: None (occurrence: None)
  Receive Date: 20091022
  Receipt Date: 20090925
  Transmission Date: 20100525
  Serious: No
  Sender: FDA-Public Use
  Company Number: US-BAYER-200914938BCC

PATIENT
  Age: 60 Year
  Sex: Female
  Weight: 114 kg

DRUGS (11)
  1. ALEVE [Suspect]
     Indication: ARTHRITIS
     Dosage: UNIT DOSE: 220 MG
     Route: 048
     Dates: start: 20090920, end: 20090921
  2. ALEVE [Suspect]
     Dosage: UNIT DOSE: 220 MG
     Route: 048
     Dates: start: 20090922
  3. SAFEWAY BRAND GINGKO [Concomitant]
     Route: 065
  4. ESTRADIOL [Concomitant]
     Route: 065
  5. PROTONIX [Concomitant]
     Route: 065
  6. SIMVASTATIN [Concomitant]
     Route: 065
  7. CLARITIN [Concomitant]
     Route: 065
  8. GLUCOSAMINE [Concomitant]
     Route: 065
  9. FOLIC ACID [Concomitant]
     Route: 065
  10. ASPIRIN [Concomitant]
     Route: 065
  11. ONE A DAY MULTI VITAMIN [Concomitant]
     Route: 065

REACTIONS (1)
  - GLOSSODYNIA [None]
